FAERS Safety Report 16496199 (Version 2)
Quarter: 2019Q3

REPORT INFORMATION
  Report Type: Spontaneous
  Country: US (occurrence: US)
  Receive Date: 20190628
  Receipt Date: 20190801
  Transmission Date: 20191004
  Serious: Yes (Death, Hospitalization, Other)
  Sender: FDA-Public Use
  Company Number: US-PFIZER INC-2019277376

PATIENT
  Age: 76 Year
  Sex: Female
  Weight: 74 kg

DRUGS (5)
  1. TYVASO [Suspect]
     Active Substance: TREPROSTINIL
     Dosage: 4 DF, 4X/DAY (4BREATHS 4 TIMES PER DAYS)
     Route: 055
     Dates: start: 201901, end: 20190617
  2. REMODULIN [Suspect]
     Active Substance: TREPROSTINIL
     Indication: PULMONARY ARTERIAL HYPERTENSION
     Dosage: UNK (DOSE - 2 NG/KG/MIN - SUBCUT, CONTINUOUS)
     Route: 058
     Dates: start: 20190520
  3. TYVASO [Suspect]
     Active Substance: TREPROSTINIL
     Indication: PULMONARY ARTERIAL HYPERTENSION
     Dosage: UNK, 3-9 BREATHS INHALED, 4X/DAY
     Route: 055
     Dates: start: 20181105
  4. SILDENAFIL CITRATE. [Suspect]
     Active Substance: SILDENAFIL CITRATE
     Indication: PULMONARY ARTERIAL HYPERTENSION
     Dosage: 20 MG, 3X/DAY
     Route: 048
     Dates: start: 201901, end: 20190617
  5. REMODULIN [Suspect]
     Active Substance: TREPROSTINIL
     Dosage: UNK(11NG/1KG 1MIN CONT.)
     Dates: start: 20190524, end: 20190617

REACTIONS (3)
  - Acute respiratory failure [Unknown]
  - Disease progression [Fatal]
  - Pulmonary arterial hypertension [Fatal]
